FAERS Safety Report 16910096 (Version 1)
Quarter: 2019Q4

REPORT INFORMATION
  Report Type: Spontaneous
  Country: US (occurrence: US)
  Receive Date: 20191011
  Receipt Date: 20191011
  Transmission Date: 20200122
  Serious: No
  Sender: FDA-Public Use
  Company Number: US-BAUSCH-BL-2019-055537

PATIENT
  Age: 67 Year
  Sex: Female

DRUGS (5)
  1. TRULANCE [Suspect]
     Active Substance: PLECANATIDE
     Dosage: DOSE WAS DECREASED TO EVERY OTHER DAY
     Route: 048
     Dates: start: 201907, end: 20190930
  2. GLUCOSAMINE WITH BOSWELLIA SERRATA (DIETARY SUPPLEMENT\HERBALS) [Suspect]
     Active Substance: DIETARY SUPPLEMENT\HERBALS
     Indication: OSTEOARTHRITIS
     Route: 065
     Dates: start: 201909, end: 201909
  3. TRULANCE [Suspect]
     Active Substance: PLECANATIDE
     Indication: IRRITABLE BOWEL SYNDROME
     Dosage: ON A DAILY DOSE
     Route: 048
     Dates: start: 201906, end: 201907
  4. GLUCOSAMINE [Suspect]
     Active Substance: GLUCOSAMINE
     Indication: OSTEOARTHRITIS
     Route: 065
     Dates: start: 20190924
  5. OATMEAL. [Suspect]
     Active Substance: OATMEAL
     Indication: PRODUCT USED FOR UNKNOWN INDICATION
     Route: 065

REACTIONS (4)
  - Diarrhoea [Recovered/Resolved]
  - Flatulence [Recovered/Resolved]
  - Food intolerance [Not Recovered/Not Resolved]
  - Anal incontinence [Recovered/Resolved]

NARRATIVE: CASE EVENT DATE: 2019
